FAERS Safety Report 12821768 (Version 1)
Quarter: 2016Q4

REPORT INFORMATION
  Report Type: Report from Study
  Country: US (occurrence: US)
  Receive Date: 20161007
  Receipt Date: 20161007
  Transmission Date: 20170207
  Serious: Yes (Other)
  Sender: FDA-Public Use
  Company Number: US-ROCHE-1836728

PATIENT
  Age: 68 Year
  Sex: Female
  Weight: 53 kg

DRUGS (15)
  1. BEVACIZUMAB [Suspect]
     Active Substance: BEVACIZUMAB
     Indication: OVARIAN EPITHELIAL CANCER
     Dosage: COURSE 2
     Route: 042
     Dates: start: 20140211
  2. BEVACIZUMAB [Suspect]
     Active Substance: BEVACIZUMAB
     Dosage: COURSE 6
     Route: 042
     Dates: start: 20140527
  3. BEVACIZUMAB [Suspect]
     Active Substance: BEVACIZUMAB
     Dosage: COURSE 9
     Route: 042
     Dates: start: 20140729
  4. BEVACIZUMAB [Suspect]
     Active Substance: BEVACIZUMAB
     Dosage: COURSE 3
     Route: 042
     Dates: start: 20140304
  5. VELIPARIB [Suspect]
     Active Substance: VELIPARIB
     Dosage: COURSE 6
     Route: 042
     Dates: start: 20140527
  6. BEVACIZUMAB [Suspect]
     Active Substance: BEVACIZUMAB
     Dosage: COURSE 4
     Route: 042
     Dates: start: 20140325
  7. BEVACIZUMAB [Suspect]
     Active Substance: BEVACIZUMAB
     Dosage: COURSE 8
     Route: 042
     Dates: start: 20140708
  8. VELIPARIB [Suspect]
     Active Substance: VELIPARIB
     Indication: OVARIAN EPITHELIAL CANCER
     Dosage: COURSE 1
     Route: 042
     Dates: start: 20140120
  9. VELIPARIB [Suspect]
     Active Substance: VELIPARIB
     Dosage: COURSE 2
     Route: 042
     Dates: start: 20140211
  10. VELIPARIB [Suspect]
     Active Substance: VELIPARIB
     Dosage: COURSE 3
     Route: 042
     Dates: start: 20140304
  11. VELIPARIB [Suspect]
     Active Substance: VELIPARIB
     Dosage: COURSE 4
     Route: 042
     Dates: start: 20140325
  12. BEVACIZUMAB [Suspect]
     Active Substance: BEVACIZUMAB
     Dosage: COURSE 7
     Route: 042
     Dates: start: 20140617
  13. BEVACIZUMAB [Suspect]
     Active Substance: BEVACIZUMAB
     Dosage: COURSE 10
     Route: 042
     Dates: start: 20140819
  14. VELIPARIB [Suspect]
     Active Substance: VELIPARIB
     Dosage: COURSE 5
     Route: 042
     Dates: start: 20140506
  15. BEVACIZUMAB [Suspect]
     Active Substance: BEVACIZUMAB
     Dosage: COURSE 5
     Route: 042
     Dates: start: 20140506

REACTIONS (5)
  - Anaemia [Unknown]
  - Epistaxis [Unknown]
  - Neutrophil count decreased [Unknown]
  - White blood cell count decreased [Unknown]
  - Platelet count decreased [Unknown]
